FAERS Safety Report 9643354 (Version 1)
Quarter: 2013Q4

REPORT INFORMATION
  Report Type: Spontaneous
  Country: CA (occurrence: CA)
  Receive Date: 20131024
  Receipt Date: 20131024
  Transmission Date: 20140711
  Serious: Yes (Other)
  Sender: FDA-Public Use
  Company Number: CHPA2013CA015758

PATIENT
  Sex: Female

DRUGS (4)
  1. EX-LAX EXTRA STRENGTH [Suspect]
     Indication: CONSTIPATION
     Dosage: UNK DF, UNK
     Route: 048
  2. ACETYLSALICYLIC ACID [Suspect]
     Dosage: UNK
  3. PLAVIX [Suspect]
  4. ANTIBIOTICS [Concomitant]
     Indication: INFECTION
     Dosage: UNK

REACTIONS (1)
  - Cerebrovascular accident [Unknown]
